FAERS Safety Report 20348023 (Version 2)
Quarter: 2023Q2

REPORT INFORMATION
  Report Type: Spontaneous
  Country: DE (occurrence: DE)
  Receive Date: 20220118
  Receipt Date: 20230404
  Transmission Date: 20230722
  Serious: Yes (Hospitalization, Other)
  Sender: FDA-Public Use
  Company Number: DE-BoehringerIngelheim-2022-BI-106670

PATIENT
  Age: 58 Year
  Sex: Female

DRUGS (2)
  1. AFATINIB [Suspect]
     Active Substance: AFATINIB
     Indication: Non-small cell lung cancer
     Dates: start: 201709
  2. AFATINIB [Suspect]
     Active Substance: AFATINIB
     Indication: EGFR gene mutation
     Dates: start: 201711, end: 202012

REACTIONS (14)
  - Adrenal gland cancer metastatic [Unknown]
  - Malignant neoplasm progression [Unknown]
  - Kidney congestion [Unknown]
  - Urosepsis [Unknown]
  - Renal abscess [Unknown]
  - Adrenal gland cancer metastatic [Unknown]
  - Adrenal gland cancer metastatic [Unknown]
  - Non-small cell lung cancer [Unknown]
  - Diarrhoea [Unknown]
  - Stomatitis [Unknown]
  - Skin fissures [Unknown]
  - Urinary retention [Unknown]
  - Nephroptosis [Unknown]
  - Nephrectomy [Unknown]

NARRATIVE: CASE EVENT DATE: 20171101
